FAERS Safety Report 25603325 (Version 2)
Quarter: 2025Q3

REPORT INFORMATION
  Report Type: Spontaneous
  Country: US (occurrence: US)
  Receive Date: 20250724
  Receipt Date: 20250812
  Transmission Date: 20251021
  Serious: No
  Sender: MALLINCKRODT
  Company Number: US-MALLINCKRODT-MNK202504382

PATIENT
  Sex: Female

DRUGS (8)
  1. CORTICOTROPIN [Suspect]
     Active Substance: CORTICOTROPIN
     Indication: Sarcoidosis
     Route: 058
  2. MELOXICAM [Concomitant]
     Active Substance: MELOXICAM
  3. AZELASTINE [Concomitant]
     Active Substance: AZELASTINE
  4. BUTALBITAL [Concomitant]
     Active Substance: BUTALBITAL
  5. IRBESARTAN [Concomitant]
     Active Substance: IRBESARTAN
  6. MECLIZINE HYDROCHLORIDE [Concomitant]
     Active Substance: MECLIZINE HYDROCHLORIDE
  7. HYDROCHLOROTHIAZIDE [Concomitant]
     Active Substance: HYDROCHLOROTHIAZIDE
  8. METFORMIN HYDROCHLORIDE [Concomitant]
     Active Substance: METFORMIN HYDROCHLORIDE

REACTIONS (3)
  - Muscle spasms [Unknown]
  - Insomnia [Recovered/Resolved]
  - Irritability [Unknown]
